FAERS Safety Report 9700990 (Version 3)
Quarter: 2014Q1

REPORT INFORMATION
  Report Type: Spontaneous
  Country: US (occurrence: US)
  Receive Date: 20131121
  Receipt Date: 20140114
  Transmission Date: 20141002
  Serious: Yes (Other)
  Sender: FDA-Public Use
  Company Number: US-ASTELLAS-2013US012043

PATIENT
  Age: 47 Year
  Sex: Female
  Weight: 57 kg

DRUGS (3)
  1. PROGRAF [Suspect]
     Indication: RENAL TRANSPLANT
     Dosage: 3 MG, UID/QD
     Route: 048
     Dates: start: 20040421
  2. PROGRAF [Suspect]
     Indication: PANCREAS TRANSPLANT
  3. ZANAFLEX [Concomitant]
     Indication: PRODUCT USED FOR UNKNOWN INDICATION
     Dosage: 4 MG, UID/QD
     Route: 048

REACTIONS (8)
  - Off label use [Unknown]
  - Chronic allograft nephropathy [Not Recovered/Not Resolved]
  - Proteinuria [Not Recovered/Not Resolved]
  - Skin papilloma [Recovered/Resolved]
  - Pyuria [Recovered/Resolved]
  - Malaise [Not Recovered/Not Resolved]
  - Fatigue [Not Recovered/Not Resolved]
  - Headache [Unknown]
